FAERS Safety Report 16538302 (Version 1)
Quarter: 2019Q3

REPORT INFORMATION
  Report Type: Spontaneous
  Country: US (occurrence: US)
  Receive Date: 20190708
  Receipt Date: 20190708
  Transmission Date: 20191004
  Serious: Yes (Hospitalization, Other)
  Sender: FDA-Public Use
  Company Number: US-BAXTER-2019BAX012989

PATIENT
  Age: 28 Year
  Sex: Female

DRUGS (9)
  1. METHADONE [Concomitant]
     Active Substance: METHADONE HYDROCHLORIDE
     Indication: CANCER PAIN
     Dosage: MAXIMIZING METHADONE
     Route: 065
  2. KETAMINE [Concomitant]
     Active Substance: KETAMINE
     Indication: CANCER PAIN
     Route: 041
  3. DEXAMETHASONE. [Concomitant]
     Active Substance: DEXAMETHASONE
     Indication: CANCER PAIN
     Dosage: MAXIMIZING DEXAMETHASONE
     Route: 065
  4. LIDOCAINE HYDROCHLORIDE AND 5% DEXTROSE INJECTION, USP [Suspect]
     Active Substance: LIDOCAINE HYDROCHLORIDE
     Indication: CANCER PAIN
     Dosage: RAPID AND CONTINUOUS LIDOCAINE INFUSIONS
     Route: 041
  5. MORPHINE [Concomitant]
     Active Substance: MORPHINE
     Indication: CANCER PAIN
     Dosage: BASAL-BOLUS INFUSION
     Route: 041
  6. HYDROMORPHONE [Concomitant]
     Active Substance: HYDROMORPHONE
     Indication: CANCER PAIN
     Dosage: BASAL-BOLUS PCA
     Route: 065
  7. KETOROLAC [Concomitant]
     Active Substance: KETOROLAC TROMETHAMINE
     Indication: CANCER PAIN
     Dosage: AS NEEDED
     Route: 065
  8. DEXAMETHASONE. [Concomitant]
     Active Substance: DEXAMETHASONE
     Route: 065
  9. MORPHINE [Concomitant]
     Active Substance: MORPHINE
     Dosage: INCREASES IN PCA MORPHINE
     Route: 065

REACTIONS (3)
  - Delirium [Recovered/Resolved]
  - Anxiety [Unknown]
  - Drug ineffective [Not Recovered/Not Resolved]
